FAERS Safety Report 5014663-3 (Version None)
Quarter: 2006Q2

REPORT INFORMATION
  Report Type: 
  Country: None (occurrence: None)
  Receive Date: 20060531
  Receipt Date: 20060525
  Transmission Date: 20061013
  Serious: Yes (Hospitalization)
  Sender: FDA-Public Use
  Company Number: ES-MERCK-0605ESP00040

PATIENT
  Age: 70 Year
  Sex: Female

DRUGS (5)
  1. FOSAMAX [Suspect]
     Indication: OSTEOPOROSIS
     Route: 048
     Dates: start: 20000101, end: 20010101
  2. FOSAMAX [Suspect]
     Route: 048
     Dates: start: 20010101, end: 20060201
  3. CALCIUM (UNSPECIFIED) AND VITAMIN D (UNSPECIFIED) [Concomitant]
     Indication: OSTEOPOROSIS
     Route: 065
  4. VITAMINS (UNSPECIFIED) [Concomitant]
     Indication: RETINAL DEGENERATION
     Route: 065
  5. MINERALS (UNSPECIFIED) [Concomitant]
     Indication: RETINAL DEGENERATION
     Route: 065

REACTIONS (2)
  - ACUTE ABDOMEN [None]
  - INTESTINAL PERFORATION [None]
